FAERS Safety Report 7287990-7 (Version None)
Quarter: 2011Q1

REPORT INFORMATION
  Report Type: 
  Country: None (occurrence: None)
  Receive Date: 20110211
  Receipt Date: 20110131
  Transmission Date: 20110831
  Serious: Yes (Other)
  Sender: FDA-Public Use
  Company Number: PHFR2010GB00581

PATIENT
  Sex: Male

DRUGS (1)
  1. CLOZARIL [Suspect]
     Indication: SCHIZOPHRENIA
     Dosage: UNK
     Route: 048
     Dates: start: 19990916

REACTIONS (8)
  - HAEMOGLOBIN DECREASED [None]
  - ANAEMIA [None]
  - BILE OUTPUT INCREASED [None]
  - WEIGHT DECREASED [None]
  - ERYTHEMA [None]
  - DYSPEPSIA [None]
  - GASTRITIS [None]
  - HELICOBACTER TEST POSITIVE [None]
